FAERS Safety Report 15867346 (Version 6)
Quarter: 2022Q3

REPORT INFORMATION
  Report Type: Spontaneous
  Country: US (occurrence: None)
  Receive Date: 20190125
  Receipt Date: 20220803
  Transmission Date: 20221027
  Serious: Yes (Other)
  Sender: FDA-Public Use
  Company Number: US-ROCHE-2121467

PATIENT
  Sex: Male

DRUGS (3)
  1. ESBRIET [Suspect]
     Active Substance: PIRFENIDONE
     Indication: Idiopathic pulmonary fibrosis
     Route: 065
     Dates: start: 201709
  2. ESBRIET [Suspect]
     Active Substance: PIRFENIDONE
     Route: 048
     Dates: start: 20171024
  3. WARFARIN [Concomitant]
     Active Substance: WARFARIN
     Indication: Cardiovascular disorder
     Route: 065

REACTIONS (6)
  - Weight decreased [Not Recovered/Not Resolved]
  - Spinal stenosis [Not Recovered/Not Resolved]
  - Malignant melanoma [Unknown]
  - Neoplasm malignant [Unknown]
  - Weight decreased [Unknown]
  - Pulmonary hypertension [Not Recovered/Not Resolved]
